FAERS Safety Report 24288337 (Version 1)
Quarter: 2024Q3

REPORT INFORMATION
  Report Type: Spontaneous
  Country: US (occurrence: US)
  Receive Date: 20240905
  Receipt Date: 20240905
  Transmission Date: 20241016
  Serious: No
  Sender: ROCHE
  Company Number: US-ROCHE-10000072197

PATIENT
  Age: 17 Year
  Sex: Male

DRUGS (1)
  1. NUTROPIN AQ NUSPIN 10 [Suspect]
     Active Substance: SOMATROPIN
     Indication: Hypopituitarism
     Dosage: 10MG/2ML?ONCE A DAY 6 DAYS PER WEEK
     Route: 058

REACTIONS (2)
  - Intercepted product prescribing error [Unknown]
  - No adverse event [Unknown]
